FAERS Safety Report 5819307-6 (Version None)
Quarter: 2008Q3

REPORT INFORMATION
  Report Type: 
  Country: None (occurrence: None)
  Receive Date: 20080723
  Receipt Date: 20080711
  Transmission Date: 20090109
  Serious: No
  Sender: FDA-Public Use
  Company Number: US-MERCK-0807USA02965B1

PATIENT

DRUGS (3)
  1. SINGULAIR [Suspect]
     Route: 064
     Dates: start: 20010801, end: 20020610
  2. VITAMINS (UNSPECIFIED) [Concomitant]
     Route: 064
     Dates: start: 20010601
  3. ASPIRIN [Concomitant]
     Route: 064
     Dates: start: 20010601

REACTIONS (2)
  - APGAR SCORE LOW [None]
  - MATERNAL DRUGS AFFECTING FOETUS [None]
